FAERS Safety Report 7775312-4 (Version None)
Quarter: 2011Q3

REPORT INFORMATION
  Report Type: 
  Country: None (occurrence: None)
  Receive Date: 20110921
  Receipt Date: 20110909
  Transmission Date: 20111222
  Serious: Yes (Death, Hospitalization)
  Sender: FDA-Public Use
  Company Number: B0748181A

PATIENT
  Age: 7 Month
  Sex: Male

DRUGS (1)
  1. PROPRANOLOL HYDROCHLORIDE [Suspect]
     Indication: CARDIAC FAILURE
     Dosage: .1 MG/KG/THREE TIMES PER DAY

REACTIONS (6)
  - PULMONARY OEDEMA [None]
  - CHRONIC OBSTRUCTIVE PULMONARY DISEASE [None]
  - INFLAMMATION [None]
  - HEPATIC FAILURE [None]
  - OXYGEN SATURATION DECREASED [None]
  - GENERAL PHYSICAL HEALTH DETERIORATION [None]
